FAERS Safety Report 11959370 (Version 4)
Quarter: 2017Q2

REPORT INFORMATION
  Report Type: Report from Study
  Country: CN (occurrence: CN)
  Receive Date: 20160126
  Receipt Date: 20170519
  Transmission Date: 20170829
  Serious: Yes (Other)
  Sender: FDA-Public Use
  Company Number: CN-ASTELLAS-2016US002895

PATIENT
  Sex: Male

DRUGS (1)
  1. ERLOTINIB [Suspect]
     Active Substance: ERLOTINIB
     Indication: NON-SMALL CELL LUNG CANCER
     Route: 048
     Dates: start: 20150528

REACTIONS (5)
  - Cerebral infarction [Unknown]
  - Pyrexia [Unknown]
  - Hydrocephalus [Unknown]
  - Viral upper respiratory tract infection [Unknown]
  - Drug resistance [Unknown]
